FAERS Safety Report 14145460 (Version 1)
Quarter: 2017Q4

REPORT INFORMATION
  Report Type: Spontaneous
  Country: US (occurrence: US)
  Receive Date: 20171030
  Receipt Date: 20171030
  Transmission Date: 20180321
  Serious: Yes (Other)
  Sender: FDA-Public Use
  Company Number: None

PATIENT
  Age: 83 Year
  Sex: Female
  Weight: 56.25 kg

DRUGS (1)
  1. OPDIVO [Suspect]
     Active Substance: NIVOLUMAB
     Indication: LUNG NEOPLASM MALIGNANT
     Route: 042

REACTIONS (5)
  - Nasal discomfort [None]
  - Weight decreased [None]
  - Eating disorder [None]
  - Cheilitis [None]
  - Lip haemorrhage [None]

NARRATIVE: CASE EVENT DATE: 20170801
